FAERS Safety Report 6162179-3 (Version None)
Quarter: 2009Q2

REPORT INFORMATION
  Report Type: 
  Country: None (occurrence: None)
  Receive Date: 20090417
  Receipt Date: 20090417
  Transmission Date: 20091009
  Serious: Yes (Hospitalization)
  Sender: FDA-Public Use
  Company Number: None

PATIENT
  Sex: Female
  Weight: 38 kg

DRUGS (1)
  1. CYTARABINE [Suspect]
     Dosage: 3900 MG

REACTIONS (14)
  - ABDOMINAL SEPSIS [None]
  - ANAEMIA [None]
  - CLOSTRIDIUM DIFFICILE COLITIS [None]
  - GASTROINTESTINAL DISORDER [None]
  - HYPOTENSION [None]
  - LACTIC ACIDOSIS [None]
  - METABOLIC ACIDOSIS [None]
  - NEUTROPENIA [None]
  - NO THERAPEUTIC RESPONSE [None]
  - PERIRECTAL ABSCESS [None]
  - PYREXIA [None]
  - SHOCK [None]
  - SYSTEMIC INFLAMMATORY RESPONSE SYNDROME [None]
  - THROMBOCYTOPENIA [None]
